FAERS Safety Report 8588237-1 (Version None)
Quarter: 2012Q3

REPORT INFORMATION
  Report Type: 
  Country: None (occurrence: None)
  Receive Date: 20120813
  Receipt Date: 20120810
  Transmission Date: 20120928
  Serious: Yes (Death)
  Sender: FDA-Public Use
  Company Number: CA-ABBOTT-12P-028-0955049-00

PATIENT
  Sex: Male
  Weight: 49.94 kg

DRUGS (1)
  1. LUPRON DEPOT [Suspect]
     Indication: PROSTATE CANCER
     Dates: start: 20100805

REACTIONS (2)
  - PROSTATE CANCER [None]
  - DISEASE COMPLICATION [None]
